FAERS Safety Report 6733074-3 (Version None)
Quarter: 2010Q2

REPORT INFORMATION
  Report Type: 
  Country: None (occurrence: None)
  Receive Date: 20100518
  Receipt Date: 20100504
  Transmission Date: 20101027
  Serious: Yes (Other)
  Sender: FDA-Public Use
  Company Number: 2010SCPR000617

PATIENT
  Age: 15 Year
  Sex: Female

DRUGS (3)
  1. VALPROIC ACID [Suspect]
     Indication: DRUG USE FOR UNKNOWN INDICATION
     Dosage: 25 MG/KG, QD
  2. CARBAMAZEPINE [Concomitant]
  3. CLOBAZAM [Concomitant]

REACTIONS (6)
  - ALPHA 1 MICROGLOBULIN URINE INCREASED [None]
  - BETA 2 MICROGLOBULIN URINE INCREASED [None]
  - EPILEPSY [None]
  - FANCONI SYNDROME [None]
  - QUADRIPLEGIA [None]
  - SEVERE MENTAL RETARDATION [None]
